FAERS Safety Report 19709606 (Version 1)
Quarter: 2021Q3

REPORT INFORMATION
  Report Type: Spontaneous
  Country: SE (occurrence: SE)
  Receive Date: 20210817
  Receipt Date: 20210817
  Transmission Date: 20211014
  Serious: Yes (Other)
  Sender: FDA-Public Use
  Company Number: SE-MYLANLABS-2021M1051137

PATIENT
  Age: 59 Year
  Sex: Female

DRUGS (3)
  1. ALLOPURINOL. [Suspect]
     Active Substance: ALLOPURINOL
     Dosage: 400 MILLIGRAM, QD
     Dates: end: 2020
  2. SPIRONOLACTONE. [Concomitant]
     Active Substance: SPIRONOLACTONE
     Dosage: 25 MILLIGRAM, QD
     Dates: end: 20201012
  3. AMLODIPINE [Concomitant]
     Active Substance: AMLODIPINE BESYLATE
     Dosage: UNK
     Dates: end: 20201012

REACTIONS (23)
  - Muscle spasms [Recovered/Resolved]
  - Oedema [Recovered/Resolved]
  - Ocular hyperaemia [Recovered/Resolved]
  - Wheezing [Recovered/Resolved]
  - Rash [Recovered/Resolved]
  - Furuncle [Recovered/Resolved]
  - Pain [Recovered/Resolved]
  - Pharyngeal ulceration [Recovered/Resolved]
  - Eye swelling [Recovered/Resolved]
  - Arthralgia [Recovered/Resolved]
  - Blister [Recovered/Resolved]
  - Skin exfoliation [Recovered/Resolved]
  - Increased tendency to bruise [Recovered/Resolved]
  - Gait disturbance [Recovered/Resolved]
  - Hypoaesthesia [Recovered/Resolved]
  - Depression [Recovered/Resolved]
  - Eye inflammation [Recovered/Resolved]
  - Asthenia [Recovered/Resolved]
  - Alopecia [Recovered/Resolved]
  - Lip ulceration [Recovered/Resolved]
  - Genital ulceration [Recovered/Resolved]
  - Nasal ulcer [Recovered/Resolved]
  - Mouth ulceration [Recovered/Resolved]

NARRATIVE: CASE EVENT DATE: 20201012
